FAERS Safety Report 5103789-1 (Version None)
Quarter: 2006Q3

REPORT INFORMATION
  Report Type: 
  Country: None (occurrence: None)
  Receive Date: 20060913
  Receipt Date: 20040727
  Transmission Date: 20061208
  Serious: Yes (Disabling, Other)
  Sender: FDA-Public Use
  Company Number: JP-BRISTOL-MYERS SQUIBB COMPANY-12657839

PATIENT
  Age: 53 Year
  Sex: Male

DRUGS (9)
  1. STOCRIN CAPS [Suspect]
     Indication: HIV INFECTION
     Dosage: ONCE DAILY
     Route: 048
     Dates: start: 20040609
  2. VIREAD [Suspect]
     Indication: HIV INFECTION
     Route: 048
     Dates: start: 20040609, end: 20040726
  3. VOLTAREN [Suspect]
     Indication: HAEMOPHILIC ARTHROPATHY
     Route: 048
     Dates: start: 20041001
  4. EPIVIR [Concomitant]
     Dates: start: 20040609, end: 20040726
  5. URSO [Concomitant]
     Dates: start: 20040616
  6. BLOPRESS [Concomitant]
     Dates: start: 20040616, end: 20041101
  7. ADALAT CC [Concomitant]
     Dates: start: 20040616, end: 20040818
  8. GASTER [Concomitant]
     Dates: start: 20040603, end: 20050914
  9. MUCOSTA [Concomitant]
     Dates: start: 20040603, end: 20041012

REACTIONS (2)
  - NEPHROPATHY [None]
  - PROTEINURIA [None]
